FAERS Safety Report 11755727 (Version 1)
Quarter: 2015Q4

REPORT INFORMATION
  Report Type: Spontaneous
  Country: US (occurrence: US)
  Receive Date: 20151119
  Receipt Date: 20151119
  Transmission Date: 20160304
  Serious: Yes (Hospitalization)
  Sender: FDA-Public Use
  Company Number: US-DSJP-DSU-2015-118049

PATIENT

DRUGS (2)
  1. BENICAR [Suspect]
     Active Substance: OLMESARTAN MEDOXOMIL
     Dosage: 40 MG DAILY IF BP ABOVE 130/80 (RARELY TAKING)
     Dates: start: 2005
  2. BENICAR [Suspect]
     Active Substance: OLMESARTAN MEDOXOMIL
     Indication: HYPERTENSION
     Dosage: 20 MG, QD
     Dates: start: 2003, end: 2005

REACTIONS (13)
  - Decreased appetite [Unknown]
  - Duodenal stenosis [Unknown]
  - Constipation [Unknown]
  - Gastric ulcer [Unknown]
  - Gastrooesophageal reflux disease [Unknown]
  - Gastritis [Unknown]
  - Hepatic steatosis [Unknown]
  - Dysphagia [Unknown]
  - Kidney infection [Unknown]
  - Acute kidney injury [Unknown]
  - Large intestine polyp [Unknown]
  - Oesophagitis [Unknown]
  - Malabsorption [Unknown]
